FAERS Safety Report 5027275-2 (Version None)
Quarter: 2006Q2

REPORT INFORMATION
  Report Type: 
  Country: None (occurrence: None)
  Receive Date: 20060608
  Receipt Date: 20060602
  Transmission Date: 20061013
  Serious: Yes (Death)
  Sender: FDA-Public Use
  Company Number: 2006070786

PATIENT
  Age: 40 Year
  Sex: Male

DRUGS (3)
  1. XANAX [Suspect]
     Indication: DEPRESSION
     Dosage: 0.75 MG (1 IN 1 D), ORAL
     Route: 048
     Dates: start: 20051028, end: 20051107
  2. LORMETAZEPAM (LORMETAZEPAM) [Suspect]
     Indication: DEPRESSION
     Dosage: 1 DOSE FORM (1 IN 1 D), ORAL
     Route: 048
     Dates: start: 20051105, end: 20051107
  3. CLOMIPRAMINE HCL [Suspect]
     Indication: DEPRESSION
     Dosage: 150 MG (1 IN 1 D), ORAL
     Route: 048
     Dates: start: 19970101, end: 20051107

REACTIONS (1)
  - COMPLETED SUICIDE [None]
